FAERS Safety Report 11143808 (Version 2)
Quarter: 2015Q3

REPORT INFORMATION
  Report Type: Spontaneous
  Country: IN (occurrence: IN)
  Receive Date: 20150528
  Receipt Date: 20150814
  Transmission Date: 20151125
  Serious: Yes (Other)
  Sender: FDA-Public Use
  Company Number: IN-JNJFOC-20150513205

PATIENT
  Age: 36 Year
  Sex: Female
  Weight: 81.8 kg

DRUGS (3)
  1. ATORVASTATIN [Concomitant]
     Active Substance: ATORVASTATIN
     Indication: BLOOD CHOLESTEROL
     Route: 065
  2. METFORMIN [Concomitant]
     Active Substance: METFORMIN HYDROCHLORIDE
     Indication: DIABETES MELLITUS
     Route: 065
  3. INVOKANA [Suspect]
     Active Substance: CANAGLIFLOZIN
     Indication: TYPE 2 DIABETES MELLITUS
     Route: 048
     Dates: start: 20150428

REACTIONS (3)
  - Furuncle [Unknown]
  - Weight increased [Recovered/Resolved]
  - Vulvovaginal mycotic infection [Recovered/Resolved]

NARRATIVE: CASE EVENT DATE: 20150513
